FAERS Safety Report 24232001 (Version 1)
Quarter: 2024Q3

REPORT INFORMATION
  Report Type: Spontaneous
  Country: TN (occurrence: TN)
  Receive Date: 20240821
  Receipt Date: 20240821
  Transmission Date: 20241017
  Serious: Yes (Life-Threatening, Hospitalization, Other)
  Sender: MACLEODS
  Company Number: TN-MACLEODS PHARMA-MAC2024048872

PATIENT
  Age: 23 Day
  Sex: Male

DRUGS (1)
  1. LIDOCAINE [Suspect]
     Active Substance: LIDOCAINE
     Indication: Nerve block
     Dosage: 3.5ML OF 1% LIDOCAINE
     Route: 058

REACTIONS (4)
  - Generalised tonic-clonic seizure [Recovered/Resolved]
  - Muscle twitching [Recovered/Resolved]
  - Toxicity to various agents [Recovered/Resolved]
  - Respiratory depression [Recovered/Resolved]
